FAERS Safety Report 20873034 (Version 2)
Quarter: 2022Q2

REPORT INFORMATION
  Report Type: Spontaneous
  Country: US (occurrence: US)
  Receive Date: 20220525
  Receipt Date: 20220531
  Transmission Date: 20220721
  Serious: Yes (Hospitalization, Other)
  Sender: FDA-Public Use
  Company Number: US-PFIZER INC-202200721243

PATIENT
  Age: 71 Year
  Sex: Female
  Weight: 48.99 kg

DRUGS (1)
  1. ACCUPRIL [Suspect]
     Active Substance: QUINAPRIL HYDROCHLORIDE
     Indication: Hypertension
     Dosage: 40 MG, 1X/DAY (IN THE MORNING)
     Route: 048
     Dates: end: 20220503

REACTIONS (8)
  - Gastric haemorrhage [Unknown]
  - Haematochezia [Unknown]
  - Recalled product administered [Unknown]
  - Hypotension [Recovering/Resolving]
  - Anaemia [Unknown]
  - Condition aggravated [Not Recovered/Not Resolved]
  - Weight decreased [Unknown]
  - Drug hypersensitivity [Unknown]

NARRATIVE: CASE EVENT DATE: 20220114
